FAERS Safety Report 18898604 (Version 1)
Quarter: 2021Q1

REPORT INFORMATION
  Report Type: Spontaneous
  Country: US (occurrence: US)
  Receive Date: 20210214
  Receipt Date: 20210214
  Transmission Date: 20210420
  Serious: Yes (Other)
  Sender: FDA-Public Use
  Company Number: None

PATIENT
  Age: 74 Year
  Sex: Female
  Weight: 57.6 kg

DRUGS (5)
  1. LABETALOL [Suspect]
     Active Substance: LABETALOL\LABETALOL HYDROCHLORIDE
     Indication: HYPERTENSION
     Dosage: ?          QUANTITY:150 TABLET(S);?
     Route: 048
  2. GLUCOSAMINE [Concomitant]
     Active Substance: GLUCOSAMINE
  3. LOSARTAN. [Concomitant]
     Active Substance: LOSARTAN
  4. GENERAL VITAMIN [Concomitant]
  5. FISH OIL [Concomitant]
     Active Substance: FISH OIL

REACTIONS (3)
  - Diarrhoea [None]
  - Skin ulcer [None]
  - Product substitution issue [None]

NARRATIVE: CASE EVENT DATE: 20200203
